FAERS Safety Report 11059084 (Version 5)
Quarter: 2015Q3

REPORT INFORMATION
  Report Type: Report from Study
  Country: CA (occurrence: CA)
  Receive Date: 20150423
  Receipt Date: 20150826
  Transmission Date: 20151125
  Serious: Yes (Hospitalization, Other)
  Sender: FDA-Public Use
  Company Number: PHHY2010CA74902

PATIENT
  Age: 74 Year
  Sex: Female

DRUGS (6)
  1. EXJADE [Suspect]
     Active Substance: DEFERASIROX
     Dosage: 500 MG, QD
     Route: 048
     Dates: start: 20130304
  2. CALCIUM [Concomitant]
     Active Substance: CALCIUM
     Indication: PRODUCT USED FOR UNKNOWN INDICATION
     Route: 065
  3. EXJADE [Suspect]
     Active Substance: DEFERASIROX
     Dosage: 500 MG, QD
     Route: 048
     Dates: start: 201003
  4. EXJADE [Suspect]
     Active Substance: DEFERASIROX
     Indication: MYELODYSPLASTIC SYNDROME
     Dosage: 500 MG, QD
     Route: 048
     Dates: start: 201001
  5. EXJADE [Suspect]
     Active Substance: DEFERASIROX
     Dosage: 1000 MG, UNK
     Route: 048
  6. EXJADE [Suspect]
     Active Substance: DEFERASIROX
     Dosage: 750 MG, QD
     Route: 048
     Dates: start: 201003

REACTIONS (20)
  - Osteoarthritis [Unknown]
  - Asthenia [Not Recovered/Not Resolved]
  - Haemoglobin decreased [Unknown]
  - Renal disorder [Unknown]
  - Uterine haemorrhage [Recovered/Resolved]
  - Leukaemia [Unknown]
  - Endometrial cancer [Unknown]
  - Weight decreased [Unknown]
  - Serum ferritin abnormal [Unknown]
  - General physical health deterioration [Unknown]
  - Haemorrhoids [Unknown]
  - Vaginal haemorrhage [Recovered/Resolved]
  - Platelet count decreased [Recovering/Resolving]
  - Fatigue [Unknown]
  - Anaemia [Unknown]
  - Arthralgia [Unknown]
  - Blood iron increased [Unknown]
  - Hepatic function abnormal [Unknown]
  - Blood iron abnormal [Unknown]
  - Dizziness [Not Recovered/Not Resolved]

NARRATIVE: CASE EVENT DATE: 20110907
